FAERS Safety Report 8723012 (Version 6)
Quarter: 2013Q1

REPORT INFORMATION
  Report Type: Spontaneous
  Country: US (occurrence: US)
  Receive Date: 20120814
  Receipt Date: 20130320
  Transmission Date: 20140127
  Serious: Yes (Hospitalization, Other)
  Sender: FDA-Public Use
  Company Number: US-MERCK-1208USA000852

PATIENT
  Sex: Female

DRUGS (7)
  1. FOSAMAX [Suspect]
     Indication: OSTEOPENIA
     Dosage: 70 MG, UNK
     Route: 048
     Dates: start: 20010627, end: 20080824
  2. FOSAMAX [Suspect]
     Indication: OSTEOPOROSIS
  3. ALENDRONATE SODIUM [Suspect]
     Indication: OSTEOPENIA
     Dosage: 70 MG, UNK
     Dates: start: 20080831, end: 20100411
  4. ALENDRONATE SODIUM [Suspect]
     Indication: OSTEOPOROSIS
  5. SYNTHROID [Concomitant]
     Indication: HYPOTHYROIDISM
     Dosage: UNK
     Dates: start: 20001227
  6. VITAMINS (UNSPECIFIED) [Concomitant]
     Dosage: UNK, QD
     Dates: start: 1972
  7. CALCIUM (UNSPECIFIED) (+) VITAMIN D (UNSPECIFIED) [Concomitant]
     Dosage: UNK, BID
     Dates: start: 2001

REACTIONS (25)
  - Open reduction of fracture [Unknown]
  - Arthrodesis [Unknown]
  - Lumbar spinal stenosis [Unknown]
  - Scoliosis [Unknown]
  - Intervertebral disc protrusion [Unknown]
  - Spinal fusion surgery [Unknown]
  - Pneumonia [Unknown]
  - Foot operation [Unknown]
  - Open reduction of fracture [Unknown]
  - Cholecystectomy [Unknown]
  - Femur fracture [Recovered/Resolved]
  - Femur fracture [Unknown]
  - Debridement [Unknown]
  - Thoracic vertebral fracture [Unknown]
  - Fall [Unknown]
  - Sternal fracture [Recovered/Resolved]
  - Radius fracture [Unknown]
  - Bursitis [Unknown]
  - Hysterectomy [Unknown]
  - Hypertension [Unknown]
  - Low turnover osteopathy [Unknown]
  - Chondropathy [Unknown]
  - Shoulder operation [Unknown]
  - Erythema nodosum [Unknown]
  - Red blood cell sedimentation rate increased [Unknown]
